FAERS Safety Report 6308158-4 (Version None)
Quarter: 2009Q3

REPORT INFORMATION
  Report Type: 
  Country: None (occurrence: None)
  Receive Date: 20090813
  Receipt Date: 20090804
  Transmission Date: 20100115
  Serious: Yes (Hospitalization)
  Sender: FDA-Public Use
  Company Number: DE-AMGEN-US359020

PATIENT
  Age: 65 Year
  Sex: Male
  Weight: 79 kg

DRUGS (12)
  1. ENBREL [Suspect]
     Indication: RHEUMATOID ARTHRITIS
     Route: 058
     Dates: start: 20080101, end: 20090301
  2. PREDNISOLONE [Interacting]
     Indication: RHEUMATOID ARTHRITIS
     Route: 048
     Dates: start: 20040101, end: 20090327
  3. PREDNISOLONE [Interacting]
     Route: 048
     Dates: start: 20090328, end: 20090330
  4. PREDNISOLONE [Interacting]
     Route: 048
     Dates: start: 20090331
  5. ARAVA [Interacting]
     Indication: RHEUMATOID ARTHRITIS
     Route: 048
     Dates: start: 20040701, end: 20090327
  6. ARCOXIA [Concomitant]
     Indication: RHEUMATOID ARTHRITIS
     Route: 048
     Dates: start: 20080101, end: 20090327
  7. ARCOXIA [Concomitant]
     Route: 048
     Dates: start: 20090328
  8. PANTOPRAZOLE SODIUM [Concomitant]
     Indication: PROPHYLAXIS AGAINST GASTROINTESTINAL ULCER
     Route: 048
     Dates: start: 20081001
  9. FOSAMAX [Concomitant]
     Indication: OSTEOPOROSIS
     Route: 048
     Dates: start: 20080101
  10. BISOPROLOL [Concomitant]
     Indication: HYPERTENSION
     Route: 048
     Dates: start: 20081001
  11. CALCILAC [Concomitant]
     Indication: OSTEOPOROSIS
     Route: 048
     Dates: start: 20080101
  12. AZATHIOPRINE [Concomitant]

REACTIONS (4)
  - ANAL ABSCESS [None]
  - DRUG INTERACTION [None]
  - IMPAIRED HEALING [None]
  - MYOCARDIAL INFARCTION [None]
